FAERS Safety Report 9497236 (Version 1)
Quarter: 2013Q3

REPORT INFORMATION
  Report Type: Report from Study
  Country: ES (occurrence: ES)
  Receive Date: 20130904
  Receipt Date: 20130904
  Transmission Date: 20140515
  Serious: No
  Sender: FDA-Public Use
  Company Number: PHHY2013ES096542

PATIENT
  Age: 54 Year
  Sex: Male
  Weight: 76.5 kg

DRUGS (3)
  1. SOM230 [Suspect]
     Indication: PITUITARY-DEPENDENT CUSHING^S SYNDROME
     Dosage: 0.6 MG, Q12H
     Route: 058
     Dates: start: 20130718, end: 20130727
  2. METOPIRONE [Concomitant]
  3. SITAGLIPTIN [Concomitant]

REACTIONS (1)
  - Hyperglycaemia [Recovering/Resolving]
